FAERS Safety Report 23285557 (Version 10)
Quarter: 2024Q1

REPORT INFORMATION
  Report Type: Report from Study
  Country: US (occurrence: US)
  Receive Date: 20231212
  Receipt Date: 20240313
  Transmission Date: 20240409
  Serious: Yes (Other)
  Sender: FDA-Public Use
  Company Number: US-ABBVIE-5436097

PATIENT
  Sex: Female

DRUGS (5)
  1. HUMIRA [Suspect]
     Active Substance: ADALIMUMAB
     Indication: Product used for unknown indication
     Route: 058
  2. RINVOQ [Suspect]
     Active Substance: UPADACITINIB
     Indication: Ankylosing spondylitis
     Dosage: LAST ADMINISTRATION DATE: 2023
     Route: 048
     Dates: start: 20230830
  3. RINVOQ [Suspect]
     Active Substance: UPADACITINIB
     Indication: Ankylosing spondylitis
     Route: 048
     Dates: start: 2023, end: 2023
  4. RINVOQ [Suspect]
     Active Substance: UPADACITINIB
     Indication: Ankylosing spondylitis
     Route: 048
  5. SIMPONI [Suspect]
     Active Substance: GOLIMUMAB
     Indication: Product used for unknown indication
     Route: 065

REACTIONS (14)
  - Glucose-6-phosphate dehydrogenase abnormal [Unknown]
  - Tinea infection [Not Recovered/Not Resolved]
  - Drug hypersensitivity [Unknown]
  - Staphylococcal infection [Not Recovered/Not Resolved]
  - Tinea infection [Recovered/Resolved]
  - Arthralgia [Unknown]
  - Eczema [Unknown]
  - Urinary tract infection [Recovering/Resolving]
  - Breast cyst [Unknown]
  - Sleep disorder [Not Recovered/Not Resolved]
  - Infection [Recovered/Resolved]
  - Fungal infection [Unknown]
  - Sinusitis [Recovering/Resolving]
  - Staphylococcal infection [Recovered/Resolved]

NARRATIVE: CASE EVENT DATE: 20230101
